FAERS Safety Report 5412972-7 (Version None)
Quarter: 2007Q3

REPORT INFORMATION
  Report Type: 
  Country: None (occurrence: None)
  Receive Date: 20070809
  Receipt Date: 20070806
  Transmission Date: 20080115
  Serious: Yes (Life-Threatening, Other)
  Sender: FDA-Public Use
  Company Number: GXKR2007BY06421

PATIENT
  Age: 63 Year
  Sex: Female

DRUGS (5)
  1. QUINIDIEN (NGX) (QUINIDINE) UNKNOWN [Suspect]
     Indication: ARRHYTHMIA
     Dosage: 200 MG, Q2H
  2. AMIODARONE HCL [Suspect]
     Indication: ARRHYTHMIA
     Dosage: 200 MG, TID
  3. LISINOPRIL [Concomitant]
  4. INDAPAMIDE (INADAPAMIDE) [Concomitant]
  5. WARFARIN [Concomitant]

REACTIONS (19)
  - ADAMS-STOKES SYNDROME [None]
  - ARRHYTHMIA [None]
  - AV DISSOCIATION [None]
  - BRADYCARDIA [None]
  - CARDIAC DEATH [None]
  - CARDIOVERSION [None]
  - CIRCULATORY COLLAPSE [None]
  - DIZZINESS [None]
  - DRUG INTERACTION [None]
  - ELECTROCARDIOGRAM ABNORMAL [None]
  - HYPERTENSION [None]
  - LONG QT SYNDROME [None]
  - NAUSEA [None]
  - SINUS BRADYCARDIA [None]
  - TORSADE DE POINTES [None]
  - VENTRICULAR EXTRASYSTOLES [None]
  - VENTRICULAR FIBRILLATION [None]
  - VENTRICULAR TACHYCARDIA [None]
  - WHEEZING [None]
